FAERS Safety Report 15626934 (Version 2)
Quarter: 2018Q4

REPORT INFORMATION
  Report Type: Spontaneous
  Country: US (occurrence: US)
  Receive Date: 20181116
  Receipt Date: 20181121
  Transmission Date: 20190205
  Serious: Yes (Hospitalization, Other)
  Sender: FDA-Public Use
  Company Number: US-PFIZER INC-2018467368

PATIENT
  Age: 56 Year
  Sex: Male
  Weight: 89 kg

DRUGS (10)
  1. BUPROPION. [Concomitant]
     Active Substance: BUPROPION
     Indication: GENERALISED ANXIETY DISORDER
  2. SERTRALINE [Concomitant]
     Active Substance: SERTRALINE HYDROCHLORIDE
     Dosage: 150 MG, DAILY (INCREASED ON DAY 6)
  3. DIPHENHYDRAMINE. [Concomitant]
     Active Substance: DIPHENHYDRAMINE
     Dosage: 50 MG, 1X/DAY (EVERY NIGHT)
  4. SERTRALINE [Concomitant]
     Active Substance: SERTRALINE HYDROCHLORIDE
     Indication: MAJOR DEPRESSION
     Dosage: 100 MG, 1X/DAY
  5. BUSPIRONE [Concomitant]
     Active Substance: BUSPIRONE HYDROCHLORIDE
     Indication: MAJOR DEPRESSION
  6. DIAZEPAM. [Suspect]
     Active Substance: DIAZEPAM
     Dosage: 10 MG, AS NEEDED (THREE TIMES DAILY)
  7. SERTRALINE [Concomitant]
     Active Substance: SERTRALINE HYDROCHLORIDE
     Dosage: 200 MG, DAILY (INCREASED ON DAY 9)
  8. ADALIMUMAB [Concomitant]
     Active Substance: ADALIMUMAB
     Indication: COLITIS ULCERATIVE
     Dosage: 40 MG, EVERY 2 WEEKS
     Route: 030
  9. BUSPIRONE [Concomitant]
     Active Substance: BUSPIRONE HYDROCHLORIDE
     Indication: GENERALISED ANXIETY DISORDER
     Dosage: 10 MG, 3X/DAY
  10. BUPROPION. [Concomitant]
     Active Substance: BUPROPION
     Indication: MAJOR DEPRESSION
     Dosage: 150 MG, 1X/DAY

REACTIONS (5)
  - Suicidal ideation [Recovered/Resolved]
  - Condition aggravated [Recovered/Resolved]
  - Gait disturbance [Recovered/Resolved]
  - Depression [Recovered/Resolved]
  - Bedridden [Recovered/Resolved]
